FAERS Safety Report 7901778-2 (Version None)
Quarter: 2011Q4

REPORT INFORMATION
  Report Type: 
  Country: None (occurrence: None)
  Receive Date: 20111108
  Receipt Date: 20111026
  Transmission Date: 20120403
  Serious: Yes (Other)
  Sender: FDA-Public Use
  Company Number: PHEH2011US07775

PATIENT
  Sex: Female
  Weight: 43.545 kg

DRUGS (10)
  1. CELEXA [Concomitant]
  2. VITAMIN D [Concomitant]
     Dosage: 1200 U, UNK
  3. ASPIRIN [Concomitant]
     Dosage: 81 MG, UNK
  4. VITAMIN B-12 [Concomitant]
     Route: 060
  5. PREVACID [Concomitant]
  6. TRANSDERM SCOP [Suspect]
     Dosage: UNK
     Dates: start: 20111023
  7. SYNTHROID [Concomitant]
  8. EXELON [Suspect]
  9. ACTIVE CAL SOFT CHEWS [Concomitant]
     Dosage: 500 MG, UNK
  10. FE [Concomitant]

REACTIONS (2)
  - MEMORY IMPAIRMENT [None]
  - DEMENTIA ALZHEIMER'S TYPE [None]
